FAERS Safety Report 6411700-6 (Version None)
Quarter: 2009Q4

REPORT INFORMATION
  Report Type: 
  Country: None (occurrence: None)
  Receive Date: 20091023
  Receipt Date: 20091012
  Transmission Date: 20100525
  Serious: Yes (Hospitalization, Other)
  Sender: FDA-Public Use
  Company Number: PHHY2009GB35854

PATIENT
  Sex: Female

DRUGS (6)
  1. CLOZARIL [Suspect]
     Indication: SCHIZOPHRENIA
     Dosage: 150 MG, UNK
     Route: 048
     Dates: start: 20040806
  2. LITHIUM [Suspect]
     Indication: SCHIZOPHRENIA
     Dosage: 800 MG
     Route: 048
  3. LITHIUM [Suspect]
     Dosage: 700 MG, QD
     Route: 048
  4. LOFEPRAMINE [Concomitant]
     Indication: DEPRESSED MOOD
     Dosage: 210 MG, UNK
     Route: 048
  5. DONEPEZIL HCL [Concomitant]
     Indication: MEMORY IMPAIRMENT
     Dosage: 10 MG, UNK
     Route: 048
     Dates: start: 20090401
  6. PROPRANOLOL [Concomitant]
     Indication: BLOOD PRESSURE
     Dosage: 10 MG, TID
     Route: 048
     Dates: end: 20090801

REACTIONS (5)
  - CONFUSIONAL STATE [None]
  - DYSARTHRIA [None]
  - HYPERTHYROIDISM [None]
  - THYROIDITIS [None]
  - TREMOR [None]
